FAERS Safety Report 10578364 (Version 2)
Quarter: 2014Q4

REPORT INFORMATION
  Report Type: Report from Study
  Country: US (occurrence: US)
  Receive Date: 20141112
  Receipt Date: 20141112
  Transmission Date: 20150529
  Serious: Yes (Hospitalization)
  Sender: FDA-Public Use
  Company Number: PHEH2014US018470

PATIENT
  Sex: Male

DRUGS (4)
  1. EXJADE [Suspect]
     Active Substance: DEFERASIROX
     Indication: LEUKAEMIA
     Dosage: 1500 MG, QD
     Route: 048
  2. CEFEPIME [Concomitant]
     Active Substance: CEFEPIME\CEFEPIME HYDROCHLORIDE
     Indication: PRODUCT USED FOR UNKNOWN INDICATION
     Route: 065
  3. EXJADE [Suspect]
     Active Substance: DEFERASIROX
     Indication: HAEMOCHROMATOSIS
     Dosage: 3000 MG, QD
     Route: 048
     Dates: start: 20140827
  4. EXJADE [Suspect]
     Active Substance: DEFERASIROX
     Indication: IRON OVERLOAD

REACTIONS (6)
  - Vomiting [Unknown]
  - Chills [Unknown]
  - Pruritus [Unknown]
  - Pyrexia [Unknown]
  - Erythema [Unknown]
  - Rash [Recovering/Resolving]
